FAERS Safety Report 14582136 (Version 1)
Quarter: 2018Q1

REPORT INFORMATION
  Report Type: Spontaneous
  Country: US (occurrence: US)
  Receive Date: 20180228
  Receipt Date: 20180228
  Transmission Date: 20180509
  Serious: Yes (Hospitalization)
  Sender: FDA-Public Use
  Company Number: US-VERTEX PHARMACEUTICALS-2018-001409

PATIENT
  Age: 17 Year
  Sex: Female

DRUGS (12)
  1. CREON [Concomitant]
     Active Substance: PANCRELIPASE AMYLASE\PANCRELIPASE LIPASE\PANCRELIPASE PROTEASE
  2. ORKAMBI [Suspect]
     Active Substance: IVACAFTOR\LUMACAFTOR
     Indication: CYSTIC FIBROSIS
     Dosage: 2 DOSAGE FORM (200/125MG EACH), BID
     Route: 048
     Dates: start: 20171109, end: 201802
  3. PULMOZYME [Concomitant]
     Active Substance: DORNASE ALFA
  4. HYPERSAL [Concomitant]
  5. AZITHROMYCIN ANHYDROUS. [Concomitant]
     Active Substance: AZITHROMYCIN ANHYDROUS
  6. URSODIOL. [Concomitant]
     Active Substance: URSODIOL
  7. VITAMIN D                          /00107901/ [Concomitant]
     Active Substance: ERGOCALCIFEROL
  8. ZANTAC [Concomitant]
     Active Substance: RANITIDINE HYDROCHLORIDE
  9. LOVENOX [Concomitant]
     Active Substance: ENOXAPARIN SODIUM
  10. FLOVENT [Concomitant]
     Active Substance: FLUTICASONE PROPIONATE
  11. CAYSTON [Concomitant]
     Active Substance: AZTREONAM
  12. MEPHYTON [Concomitant]
     Active Substance: PHYTONADIONE

REACTIONS (4)
  - Splenomegaly [Unknown]
  - Nausea [Unknown]
  - Abdominal pain upper [Unknown]
  - Liver disorder [Not Recovered/Not Resolved]

NARRATIVE: CASE EVENT DATE: 20180215
